FAERS Safety Report 11317138 (Version 1)
Quarter: 2015Q3

REPORT INFORMATION
  Report Type: Spontaneous
  Country: US (occurrence: None)
  Receive Date: 20150727
  Receipt Date: 20150727
  Transmission Date: 20151125
  Serious: Yes (Disabling)
  Sender: FDA-Public Use
  Company Number: None

PATIENT
  Age: 60 Year
  Sex: Female
  Weight: 45.36 kg

DRUGS (4)
  1. LEVOXYL [Suspect]
     Active Substance: LEVOTHYROXINE SODIUM
     Indication: HYPOTHYROIDISM
     Dosage: 1/2 PILL
     Route: 048
  2. ZOLPIDEM [Concomitant]
     Active Substance: ZOLPIDEM\ZOLPIDEM TARTRATE
  3. LEVOXYL [Suspect]
     Active Substance: LEVOTHYROXINE SODIUM
     Indication: AUTOIMMUNE THYROIDITIS
     Dosage: 1/2 PILL
     Route: 048
  4. VYTORIN [Concomitant]
     Active Substance: EZETIMIBE\SIMVASTATIN

REACTIONS (35)
  - Body temperature abnormal [None]
  - Blood pressure abnormal [None]
  - Nausea [None]
  - Balance disorder [None]
  - Dermatitis [None]
  - Musculoskeletal chest pain [None]
  - Fatigue [None]
  - Tongue coated [None]
  - Gingival pain [None]
  - Dizziness [None]
  - Psychomotor hyperactivity [None]
  - Muscle tightness [None]
  - Product quality issue [None]
  - Decreased activity [None]
  - Myalgia [None]
  - Thirst [None]
  - Glossodynia [None]
  - Weight gain poor [None]
  - Malaise [None]
  - Dysgeusia [None]
  - Ear discomfort [None]
  - Upper-airway cough syndrome [None]
  - Weight decreased [None]
  - Feeling cold [None]
  - Eye irritation [None]
  - Asthenia [None]
  - Pruritus [None]
  - Vitamin D decreased [None]
  - Product taste abnormal [None]
  - Dehydration [None]
  - Oropharyngeal pain [None]
  - Dry eye [None]
  - Visual impairment [None]
  - Skin discolouration [None]
  - Bone pain [None]

NARRATIVE: CASE EVENT DATE: 20150612
